FAERS Safety Report 24170359 (Version 3)
Quarter: 2025Q2

REPORT INFORMATION
  Report Type: Spontaneous
  Country: JP (occurrence: JP)
  Receive Date: 20240803
  Receipt Date: 20250603
  Transmission Date: 20250717
  Serious: Yes (Congenital Anomaly, Other)
  Sender: TEVA
  Company Number: JP-OTSUKA-2024_020901

PATIENT
  Age: 22 Day
  Sex: Male
  Weight: 2.83 kg

DRUGS (4)
  1. AJOVY [Suspect]
     Active Substance: FREMANEZUMAB-VFRM
     Indication: Product used for unknown indication
     Dosage: 675MG/SHOT, 3 SHOTS (ONCE EVERY 12 WEEKS)
     Route: 064
     Dates: start: 20231003, end: 20231003
  2. ACETAMINOPHEN [Suspect]
     Active Substance: ACETAMINOPHEN
     Indication: Product used for unknown indication
     Route: 064
  3. AMOXICILLIN TRIHYDRATE [Suspect]
     Active Substance: AMOXICILLIN
     Indication: Product used for unknown indication
     Route: 064
  4. METOCLOPRAMIDE HYDROCHLORIDE [Suspect]
     Active Substance: METOCLOPRAMIDE HYDROCHLORIDE
     Indication: Product used for unknown indication
     Route: 064

REACTIONS (2)
  - Congenital syphilis [Unknown]
  - Foetal exposure during pregnancy [Unknown]
